APPROVED DRUG PRODUCT: CLOBETASOL PROPIONATE
Active Ingredient: CLOBETASOL PROPIONATE
Strength: 0.05%
Dosage Form/Route: LOTION;TOPICAL
Application: A211348 | Product #001
Applicant: EPIC PHARMA LLC
Approved: Oct 26, 2018 | RLD: No | RS: No | Type: DISCN